FAERS Safety Report 5074918-3 (Version None)
Quarter: 2006Q3

REPORT INFORMATION
  Report Type: 
  Country: None (occurrence: None)
  Receive Date: 20060809
  Receipt Date: 20000724
  Transmission Date: 20061208
  Serious: Yes (Other)
  Sender: FDA-Public Use
  Company Number: PHBS2000AU04456

PATIENT
  Age: 30 Year
  Sex: Female

DRUGS (6)
  1. RULIDE [Suspect]
     Indication: RESPIRATORY TRACT INFECTION
     Dosage: UNSPECIFIED
     Route: 048
     Dates: start: 19970101, end: 19970101
  2. CLOZARIL [Suspect]
     Indication: SCHIZOPHRENIA, PARANOID TYPE
     Dosage: 25 - 125 MG DAILY
     Dates: start: 20000725, end: 20000806
  3. CLOZARIL [Suspect]
     Dosage: 75 - 300MG DAILY
     Route: 048
     Dates: start: 19970911, end: 19971008
  4. SERTRALINE [Concomitant]
     Dosage: 50 MG
  5. FLUPENTIXOL [Concomitant]
     Dosage: DEPOT
  6. CLONAZEPAM [Concomitant]
     Dosage: 0.5 MG, QD

REACTIONS (9)
  - ABDOMINAL TENDERNESS [None]
  - BLOOD ALKALINE PHOSPHATASE INCREASED [None]
  - HYPERHIDROSIS [None]
  - JAUNDICE CHOLESTATIC [None]
  - LIVER FUNCTION TEST ABNORMAL [None]
  - PHARYNGOLARYNGEAL PAIN [None]
  - PYREXIA [None]
  - RASH [None]
  - RESPIRATORY TRACT INFECTION [None]
